FAERS Safety Report 24259845 (Version 1)
Quarter: 2024Q3

REPORT INFORMATION
  Report Type: Report from Study
  Country: US (occurrence: None)
  Receive Date: 20240828
  Receipt Date: 20240828
  Transmission Date: 20241016
  Serious: Yes (Other)
  Sender: ASTRAZENECA
  Company Number: 2024A190301

PATIENT

DRUGS (1)
  1. CRESTOR [Suspect]
     Active Substance: ROSUVASTATIN CALCIUM
     Route: 048

REACTIONS (5)
  - Cardiac disorder [Unknown]
  - Cerebrovascular accident [Unknown]
  - Arterial occlusive disease [Unknown]
  - Skin discolouration [Unknown]
  - Therapy interrupted [Unknown]
